FAERS Safety Report 11103510 (Version 1)
Quarter: 2015Q2

REPORT INFORMATION
  Report Type: Spontaneous
  Country: US (occurrence: US)
  Receive Date: 20150511
  Receipt Date: 20150511
  Transmission Date: 20150821
  Serious: Yes (Death, Other)
  Sender: FDA-Public Use
  Company Number: US-APOTEX-2015AP009021

PATIENT
  Age: 22 Day
  Sex: Female
  Weight: 1.5 kg

DRUGS (2)
  1. FLUCONAZOLE INJECTION (ISO-OSMOTIC SODIUM CHLORIDE DILUENT) [Suspect]
     Active Substance: FLUCONAZOLE
     Indication: CANDIDA INFECTION
     Dosage: 10 G/KG ONCE DAILY
     Route: 042
  2. DEFEROXAMINE [Suspect]
     Active Substance: DEFEROXAMINE\DEFEROXAMINE MESYLATE
     Indication: PRODUCT USED FOR UNKNOWN INDICATION
     Route: 065

REACTIONS (5)
  - Multi-organ failure [Fatal]
  - Toxic epidermal necrolysis [Fatal]
  - Bradycardia [None]
  - Cardiac arrest [None]
  - Acinetobacter test positive [None]
